FAERS Safety Report 23145207 (Version 1)
Quarter: 2023Q4

REPORT INFORMATION
  Report Type: Report from Study
  Country: JP (occurrence: JP)
  Receive Date: 20231103
  Receipt Date: 20231103
  Transmission Date: 20240110
  Serious: Yes (Other)
  Sender: FDA-Public Use
  Company Number: JP-JNJFOC-20231107630

PATIENT

DRUGS (2)
  1. EPOPROSTENOL SODIUM [Suspect]
     Active Substance: EPOPROSTENOL SODIUM
     Indication: Pulmonary arterial hypertension
     Dosage: EPOPROSTENOL SODIUM:1.593MG
     Route: 042
  2. TREPROSTINIL [Suspect]
     Active Substance: TREPROSTINIL
     Indication: Pulmonary arterial hypertension
     Dosage: DOSE UNKNOWN
     Route: 065

REACTIONS (6)
  - Device related infection [Unknown]
  - Hyperthyroidism [Unknown]
  - Haemoptysis [Unknown]
  - Pain [Unknown]
  - Platelet count decreased [Unknown]
  - Adverse reaction [Unknown]
